FAERS Safety Report 9504844 (Version 2)
Quarter: 2013Q3

REPORT INFORMATION
  Report Type: Spontaneous
  Country: US (occurrence: US)
  Receive Date: 20130906
  Receipt Date: 20130913
  Transmission Date: 20140515
  Serious: No
  Sender: FDA-Public Use
  Company Number: US-009507513-1309USA000693

PATIENT
  Age: 68 Year
  Sex: Female

DRUGS (1)
  1. ASMANEX TWISTHALER [Suspect]
     Indication: ASTHMA
     Dosage: 220 MICROGRAMS; 2 PUFFS, BID
     Route: 055
     Dates: start: 20130819, end: 201308

REACTIONS (1)
  - Drug ineffective [Recovering/Resolving]
